FAERS Safety Report 14661844 (Version 1)
Quarter: 2018Q1

REPORT INFORMATION
  Report Type: Spontaneous
  Country: US (occurrence: US)
  Receive Date: 20180318
  Receipt Date: 20180318
  Transmission Date: 20180509
  Serious: Yes (Life-Threatening, Hospitalization, Disabling, Other)
  Sender: FDA-Public Use
  Company Number: None

PATIENT
  Age: 31 Year
  Sex: Male
  Weight: 88.2 kg

DRUGS (4)
  1. ZYPREXA [Suspect]
     Active Substance: OLANZAPINE
     Indication: ATTENTION DEFICIT/HYPERACTIVITY DISORDER
     Dosage: ?          QUANTITY:30 TABLET(S);?
     Route: 054
     Dates: start: 20180203, end: 20180318
  2. ZYPREXA [Suspect]
     Active Substance: OLANZAPINE
     Indication: BIPOLAR II DISORDER
     Dosage: ?          QUANTITY:30 TABLET(S);?
     Route: 054
     Dates: start: 20180203, end: 20180318
  3. HALODOL [Suspect]
     Active Substance: HALOPERIDOL
     Indication: BIPOLAR II DISORDER
     Dosage: ?          QUANTITY:60 TABLET(S);?
     Route: 048
     Dates: start: 20180129, end: 20180318
  4. HALODOL [Suspect]
     Active Substance: HALOPERIDOL
     Indication: ATTENTION DEFICIT/HYPERACTIVITY DISORDER
     Dosage: ?          QUANTITY:60 TABLET(S);?
     Route: 048
     Dates: start: 20180129, end: 20180318

REACTIONS (3)
  - Weight increased [None]
  - Psychopathic personality [None]
  - Mean cell haemoglobin increased [None]

NARRATIVE: CASE EVENT DATE: 20180128
